FAERS Safety Report 5980331-4 (Version None)
Quarter: 2008Q4

REPORT INFORMATION
  Report Type: 
  Country: None (occurrence: None)
  Receive Date: 20081205
  Receipt Date: 20081127
  Transmission Date: 20090506
  Serious: Yes (Disabling, Other)
  Sender: FDA-Public Use
  Company Number: GB-BAYER-200824255GPV

PATIENT
  Age: 44 Year
  Sex: Male

DRUGS (6)
  1. MABCAMPATH [Suspect]
     Indication: ANTI-NEUTROPHIL CYTOPLASMIC ANTIBODY POSITIVE VASCULITIS
     Route: 042
     Dates: start: 19980610, end: 19980616
  2. MABCAMPATH [Suspect]
     Route: 042
     Dates: start: 19981111, end: 19981117
  3. PREDNISOLONE [Concomitant]
     Indication: ANTI-NEUTROPHIL CYTOPLASMIC ANTIBODY POSITIVE VASCULITIS
     Route: 048
  4. CYCLOPHOSPHAMIDE [Concomitant]
     Indication: ANTI-NEUTROPHIL CYTOPLASMIC ANTIBODY POSITIVE VASCULITIS
     Route: 048
     Dates: end: 19980610
  5. ALLOPURINOL [Concomitant]
     Indication: GOUT
     Route: 048
  6. DOXAZOSIN MESYLATE [Concomitant]
     Indication: HYPERTENSION
     Route: 048

REACTIONS (2)
  - NEPHRITIS AUTOIMMUNE [None]
  - RENAL FAILURE ACUTE [None]
